FAERS Safety Report 17983181 (Version 1)
Quarter: 2020Q3

REPORT INFORMATION
  Report Type: Spontaneous
  Country: US (occurrence: US)
  Receive Date: 20200702
  Receipt Date: 20200702
  Transmission Date: 20201103
  Serious: No
  Sender: FDA-Public Use
  Company Number: None

PATIENT
  Age: 32 Year
  Sex: Male

DRUGS (1)
  1. TEMOZOLOMIDE CAP 100MG 1X5 [Suspect]
     Active Substance: TEMOZOLOMIDE
     Route: 048
     Dates: start: 20200505

REACTIONS (4)
  - Arthralgia [None]
  - Nausea [None]
  - Vomiting [None]
  - Bone pain [None]

NARRATIVE: CASE EVENT DATE: 20200702
